FAERS Safety Report 4396324-7 (Version None)
Quarter: 2004Q3

REPORT INFORMATION
  Report Type: 
  Country: None (occurrence: None)
  Receive Date: 20040708
  Receipt Date: 20040623
  Transmission Date: 20050211
  Serious: Yes (Other)
  Sender: FDA-Public Use
  Company Number: 2004-DE-03472GD

PATIENT
  Sex: Female

DRUGS (1)
  1. PRAMIPEXOLE (PRAMIPEXOLE DIHYDROCHLORIDE) (NR) (PRAMIPEXOLE) [Suspect]
     Indication: PARKINSONISM

REACTIONS (3)
  - CONDITION AGGRAVATED [None]
  - DRUG EFFECT DECREASED [None]
  - DYSKINESIA [None]
